FAERS Safety Report 9656290 (Version 1)
Quarter: 2013Q4

REPORT INFORMATION
  Report Type: Spontaneous
  Country: US (occurrence: US)
  Receive Date: 20131030
  Receipt Date: 20131030
  Transmission Date: 20140711
  Serious: No
  Sender: FDA-Public Use
  Company Number: US-PFIZER INC-2013307965

PATIENT
  Sex: Female

DRUGS (2)
  1. NORPACE [Suspect]
     Dosage: 200 MG, DAILY
  2. NORPACE CR [Suspect]

REACTIONS (1)
  - Vision blurred [Unknown]
